FAERS Safety Report 5853302-6 (Version None)
Quarter: 2008Q3

REPORT INFORMATION
  Report Type: 
  Country: None (occurrence: None)
  Receive Date: 20080821
  Receipt Date: 20080808
  Transmission Date: 20090109
  Serious: Yes (Life-Threatening, Hospitalization)
  Sender: FDA-Public Use
  Company Number: NL-PFIZER INC-2006061602

PATIENT
  Sex: Male
  Weight: 81 kg

DRUGS (7)
  1. SU-011,248 [Suspect]
     Indication: GASTROINTESTINAL STROMAL TUMOUR
     Route: 048
     Dates: start: 20050210, end: 20060502
  2. PANTOZOL [Concomitant]
     Route: 048
  3. ACTONEL [Concomitant]
     Route: 048
  4. PREDNISOLONE [Concomitant]
     Route: 048
  5. METHOTREXATE SODIUM [Concomitant]
     Route: 048
  6. FOLIC ACID [Concomitant]
     Route: 048
  7. METOPROLOL TARTRATE [Concomitant]
     Route: 048

REACTIONS (1)
  - BACTERIAL SEPSIS [None]
